FAERS Safety Report 4713934-5 (Version None)
Quarter: 2005Q3

REPORT INFORMATION
  Report Type: 
  Country: None (occurrence: None)
  Receive Date: 20050713
  Receipt Date: 20050629
  Transmission Date: 20060218
  Serious: Yes (Hospitalization)
  Sender: FDA-Public Use
  Company Number: JP_050606851

PATIENT
  Age: 41 Year
  Sex: Female
  Weight: 41 kg

DRUGS (3)
  1. HUMATROPE [Suspect]
     Dates: start: 19990101
  2. HUMAN MENOPAUSAL GONADOTROPIN [Concomitant]
  3. GONADOTROPIN CHORIONIC [Concomitant]

REACTIONS (6)
  - BLOOD PROLACTIN INCREASED [None]
  - BREAST CANCER STAGE II [None]
  - BREAST MASS [None]
  - FIBROADENOMA [None]
  - OESTRADIOL INCREASED [None]
  - OESTROGEN RECEPTOR ASSAY POSITIVE [None]
